FAERS Safety Report 9109057 (Version 3)
Quarter: 2018Q3

REPORT INFORMATION
  Report Type: Report from Study
  Country: BR (occurrence: BR)
  Receive Date: 20130222
  Receipt Date: 20180716
  Transmission Date: 20181010
  Serious: Yes (Congenital Anomaly)
  Sender: FDA-Public Use
  Company Number: BR-VIIV HEALTHCARE LIMITED-A1012284A

PATIENT
  Age: 0 Year
  Sex: Female
  Weight: 2.9 kg

DRUGS (8)
  1. EFAVIRENZ. [Suspect]
     Active Substance: EFAVIRENZ
     Indication: ANTIRETROVIRAL THERAPY
     Route: 064
     Dates: end: 20120611
  2. TRUVADA [Suspect]
     Active Substance: EMTRICITABINE\TENOFOVIR DISOPROXIL FUMARATE
     Indication: ANTIRETROVIRAL THERAPY
     Dosage: TABLETS/CAPSULES
     Route: 064
     Dates: start: 20120521
  3. ZIDOVUDINE. [Suspect]
     Active Substance: ZIDOVUDINE
     Indication: ANTIVIRAL TREATMENT
     Route: 064
     Dates: start: 20121128, end: 20121128
  4. LAMIVUDINE. [Suspect]
     Active Substance: LAMIVUDINE
     Indication: ANTIRETROVIRAL THERAPY
     Route: 064
     Dates: start: 20120521
  5. ABACAVIR SULPHATE [Suspect]
     Active Substance: ABACAVIR
     Indication: ANTIRETROVIRAL THERAPY
     Route: 064
     Dates: start: 20120803
  6. LEXIVA [Suspect]
     Active Substance: FOSAMPRENAVIR CALCIUM
     Indication: ANTIRETROVIRAL THERAPY
     Dosage: UNK, U
     Route: 064
     Dates: start: 20120711, end: 20120803
  7. ISENTRESS [Suspect]
     Active Substance: RALTEGRAVIR POTASSIUM
     Indication: ANTIRETROVIRAL THERAPY
     Route: 064
     Dates: start: 20120803
  8. LAMIVUDINE AND ZIDOVUDINE [Suspect]
     Active Substance: LAMIVUDINE\ZIDOVUDINE
     Indication: ANTIRETROVIRAL THERAPY
     Route: 064
     Dates: end: 20120521

REACTIONS (3)
  - Foetal exposure during pregnancy [Unknown]
  - Diastasis recti abdominis [Unknown]
  - Genital prolapse [Unknown]

NARRATIVE: CASE EVENT DATE: 2012
